FAERS Safety Report 7461497-6 (Version None)
Quarter: 2011Q2

REPORT INFORMATION
  Report Type: 
  Country: None (occurrence: None)
  Receive Date: 20110506
  Receipt Date: 20110426
  Transmission Date: 20111010
  Serious: Yes (Other)
  Sender: FDA-Public Use
  Company Number: US-US-EMD SERONO, INC.-7056257

PATIENT
  Sex: Female

DRUGS (3)
  1. ZONEGRAN [Concomitant]
     Indication: PAIN
  2. TRILEPTAL [Concomitant]
     Indication: PAIN
  3. REBIF [Suspect]
     Indication: PRODUCT USED FOR UNKNOWN INDICATION
     Route: 058
     Dates: start: 20060816

REACTIONS (6)
  - DEPRESSION [None]
  - SUICIDAL BEHAVIOUR [None]
  - BLOOD SODIUM DECREASED [None]
  - FEELING ABNORMAL [None]
  - HEPATIC ENZYME INCREASED [None]
  - WHITE BLOOD CELL COUNT DECREASED [None]
